FAERS Safety Report 15015741 (Version 1)
Quarter: 2018Q2

REPORT INFORMATION
  Report Type: Spontaneous
  Country: PL (occurrence: PL)
  Receive Date: 20180615
  Receipt Date: 20180615
  Transmission Date: 20180711
  Serious: Yes (Death)
  Sender: FDA-Public Use
  Company Number: PL-BIOGEN-2018BI00594161

PATIENT
  Age: 31 Year
  Sex: Female

DRUGS (1)
  1. TECFIDERA [Suspect]
     Active Substance: DIMETHYL FUMARATE
     Indication: MULTIPLE SCLEROSIS
     Route: 048
     Dates: start: 20161214, end: 20171128

REACTIONS (2)
  - Pancreatic neoplasm [Fatal]
  - Cholelithiasis [Fatal]

NARRATIVE: CASE EVENT DATE: 20171128
